FAERS Safety Report 24607777 (Version 1)
Quarter: 2024Q4

REPORT INFORMATION
  Report Type: Spontaneous
  Country: JP (occurrence: JP)
  Receive Date: 20241112
  Receipt Date: 20241112
  Transmission Date: 20250114
  Serious: Yes (Other)
  Sender: ACCORD
  Company Number: JP-Accord-453568

PATIENT
  Age: 75 Year
  Sex: Male

DRUGS (10)
  1. CISPLATIN [Suspect]
     Active Substance: CISPLATIN
     Indication: Oesophageal squamous cell carcinoma stage I
     Dosage: 120 MG/BODY WEIGHT ON DAY 1, EVERY 3 WEEKS
  2. FLUOROURACIL [Suspect]
     Active Substance: FLUOROURACIL
     Indication: Oesophageal squamous cell carcinoma stage I
     Dosage: 1,200 MG/ BODY ON DAYS 1-5, EVERY 3 WEEK
  3. PEMBROLIZUMAB [Suspect]
     Active Substance: PEMBROLIZUMAB
     Indication: Oesophageal squamous cell carcinoma stage I
     Dosage: 200 MG/BODY WEIGHT ON DAY 1, EVERY 3 WEEKS
  4. PEMBROLIZUMAB [Suspect]
     Active Substance: PEMBROLIZUMAB
     Dosage: MONOTHERAPY
  5. CISPLATIN [Suspect]
     Active Substance: CISPLATIN
     Indication: Metastases to lung
     Dosage: 120 MG/BODY WEIGHT ON DAY 1, EVERY 3 WEEKS
  6. PEMBROLIZUMAB [Suspect]
     Active Substance: PEMBROLIZUMAB
     Indication: Metastases to lung
     Dosage: 200 MG/BODY WEIGHT ON DAY 1, EVERY 3 WEEKS
  7. FLUOROURACIL [Suspect]
     Active Substance: FLUOROURACIL
     Indication: Metastases to lung
     Dosage: 1,200 MG/ BODY ON DAYS 1-5, EVERY 3 WEEK
  8. CISPLATIN [Suspect]
     Active Substance: CISPLATIN
     Indication: Metastases to lymph nodes
     Dosage: 120 MG/BODY WEIGHT ON DAY 1, EVERY 3 WEEKS
  9. FLUOROURACIL [Suspect]
     Active Substance: FLUOROURACIL
     Indication: Metastases to lymph nodes
     Dosage: 1,200 MG/ BODY ON DAYS 1-5, EVERY 3 WEEK
  10. PEMBROLIZUMAB [Suspect]
     Active Substance: PEMBROLIZUMAB
     Indication: Metastases to lymph nodes
     Dosage: 200 MG/BODY WEIGHT ON DAY 1, EVERY 3 WEEKS

REACTIONS (6)
  - Nausea [Unknown]
  - Fatigue [Unknown]
  - Constipation [Unknown]
  - Stomatitis [Unknown]
  - Therapy partial responder [Unknown]
  - Hypothyroidism [Unknown]
